FAERS Safety Report 4365560-8 (Version None)
Quarter: 2004Q2

REPORT INFORMATION
  Report Type: 
  Country: None (occurrence: None)
  Receive Date: 20040526
  Receipt Date: 20040517
  Transmission Date: 20050107
  Serious: Yes (Hospitalization)
  Sender: FDA-Public Use
  Company Number: JP-BRISTOL-MYERS SQUIBB COMPANY-12588513

PATIENT
  Age: 53 Year
  Sex: Male

DRUGS (8)
  1. RESLIN [Suspect]
     Indication: DEPRESSION
     Route: 048
  2. LITHIUM CARBONATE [Suspect]
     Route: 048
  3. ZOTEPINE [Suspect]
     Route: 048
  4. TRIHEXYPHENIDYL HCL [Suspect]
     Route: 048
  5. SULTOPRIDE HCL [Suspect]
     Indication: DEPRESSION
     Route: 048
  6. PROMETHAZINE HCL [Suspect]
     Route: 048
  7. SULPIRIDE [Suspect]
     Indication: DEPRESSION
     Route: 048
  8. PAROXETINE HCL [Suspect]
     Route: 048

REACTIONS (12)
  - ABNORMAL BEHAVIOUR [None]
  - ANXIETY [None]
  - DECREASED APPETITE [None]
  - DEEP VEIN THROMBOSIS [None]
  - DYSPHAGIA [None]
  - DYSURIA [None]
  - ERYTHEMA [None]
  - GAIT DISTURBANCE [None]
  - OEDEMA PERIPHERAL [None]
  - PARKINSON'S DISEASE [None]
  - RESTLESSNESS [None]
  - STUPOR [None]
